FAERS Safety Report 5535601-0 (Version None)
Quarter: 2007Q4

REPORT INFORMATION
  Report Type: 
  Country: None (occurrence: None)
  Receive Date: 20071206
  Receipt Date: 20061219
  Transmission Date: 20080405
  Serious: Yes (Hospitalization)
  Sender: FDA-Public Use
  Company Number: US-AMGEN-US202944

PATIENT
  Sex: Female
  Weight: 90.3 kg

DRUGS (3)
  1. ENBREL [Suspect]
     Indication: RHEUMATOID ARTHRITIS
     Route: 058
     Dates: start: 20031003
  2. ARAVA [Concomitant]
     Route: 048
     Dates: start: 20030616
  3. VICODIN [Concomitant]
     Route: 065

REACTIONS (1)
  - DIVERTICULITIS [None]
